FAERS Safety Report 13650802 (Version 2)
Quarter: 2017Q3

REPORT INFORMATION
  Report Type: Report from Study
  Country: CA (occurrence: CA)
  Receive Date: 20170614
  Receipt Date: 20170714
  Transmission Date: 20171127
  Serious: Yes (Other)
  Sender: FDA-Public Use
  Company Number: CA-BIOGEN-2017BI00416154

PATIENT
  Age: 53 Year
  Sex: Female

DRUGS (3)
  1. TECFIDERA [Suspect]
     Active Substance: DIMETHYL FUMARATE
     Dosage: STARTING DOSE
     Route: 048
     Dates: start: 20170603, end: 20170617
  2. TECFIDERA [Suspect]
     Active Substance: DIMETHYL FUMARATE
     Indication: MULTIPLE SCLEROSIS
     Dosage: TITRATED DOSE
     Route: 048
     Dates: start: 20170520, end: 20170602
  3. TECFIDERA [Suspect]
     Active Substance: DIMETHYL FUMARATE
     Dosage: TITRATED DOSE
     Route: 048
     Dates: start: 20170620, end: 20170707

REACTIONS (2)
  - Thyroid cancer [Not Recovered/Not Resolved]
  - Underdose [Recovered/Resolved]

NARRATIVE: CASE EVENT DATE: 20170520
